FAERS Safety Report 13546232 (Version 2)
Quarter: 2017Q2

REPORT INFORMATION
  Report Type: Spontaneous
  Country: US (occurrence: US)
  Receive Date: 20170515
  Receipt Date: 20170530
  Transmission Date: 20170830
  Serious: No
  Sender: FDA-Public Use
  Company Number: US-SUNOVION-2017SUN001760

PATIENT

DRUGS (4)
  1. NEURONTIN [Concomitant]
     Active Substance: GABAPENTIN
  2. LATUDA [Suspect]
     Active Substance: LURASIDONE HYDROCHLORIDE
     Indication: BIPOLAR DISORDER
     Dosage: UNK MG, UNK
     Route: 048
  3. OTHER NERVOUS SYSTEM DRUGS [Concomitant]
     Indication: ANXIETY
  4. VISTARIL [Suspect]
     Active Substance: HYDROXYZINE PAMOATE

REACTIONS (3)
  - Tension [Unknown]
  - Anxiety [Unknown]
  - Akathisia [Unknown]
